FAERS Safety Report 8593915-4 (Version None)
Quarter: 2012Q3

REPORT INFORMATION
  Report Type: 
  Country: None (occurrence: None)
  Receive Date: 20120814
  Receipt Date: 20120803
  Transmission Date: 20120928
  Serious: No
  Sender: FDA-Public Use
  Company Number: US-ASTRAZENECA-2012SE55133

PATIENT
  Age: 70 Year
  Sex: Female
  Weight: 86.2 kg

DRUGS (7)
  1. NEXIUM [Suspect]
     Indication: GASTROOESOPHAGEAL REFLUX DISEASE
     Route: 048
     Dates: start: 20030101, end: 20030101
  2. NEXIUM [Suspect]
     Route: 048
  3. HYDROCHLOROTHIAZIDE [Concomitant]
     Indication: HYPERTENSION
  4. NEXIUM [Suspect]
     Indication: GASTRIC ULCER
     Route: 048
     Dates: start: 20030101, end: 20030101
  5. NEXIUM [Suspect]
     Route: 048
     Dates: start: 20030101, end: 20090101
  6. NEXIUM [Suspect]
     Route: 048
     Dates: start: 20030101, end: 20090101
  7. NEXIUM [Suspect]
     Route: 048

REACTIONS (4)
  - GASTROOESOPHAGEAL REFLUX DISEASE [None]
  - DRUG DOSE OMISSION [None]
  - WEIGHT DECREASED [None]
  - WEIGHT INCREASED [None]
